FAERS Safety Report 4281843-4 (Version None)
Quarter: 2004Q1

REPORT INFORMATION
  Report Type: 
  Country: None (occurrence: None)
  Receive Date: 20040129
  Receipt Date: 20030911
  Transmission Date: 20041129
  Serious: No
  Sender: FDA-Public Use
  Company Number: WAES 0309GBR00117

PATIENT
  Age: 60 Year
  Sex: Male

DRUGS (5)
  1. [THERAPY UNSPECIFIED] [Concomitant]
  2. ASPIRIN [Concomitant]
  3. DESLORATADINE [Concomitant]
  4. COZAAR [Suspect]
     Indication: HYPERTENSION
     Route: 048
     Dates: start: 20030708
  5. RAMIPRIL [Suspect]

REACTIONS (6)
  - COLD SWEAT [None]
  - COUGH [None]
  - DYSPNOEA [None]
  - HYPERTENSION [None]
  - RHINORRHOEA [None]
  - THROAT TIGHTNESS [None]
